FAERS Safety Report 4300222-4 (Version None)
Quarter: 2004Q1

REPORT INFORMATION
  Report Type: 
  Country: None (occurrence: None)
  Receive Date: 20040218
  Receipt Date: 20040218
  Transmission Date: 20041129
  Serious: No
  Sender: FDA-Public Use
  Company Number: None

PATIENT
  Age: 60 Year
  Sex: Male

DRUGS (1)
  1. BUPROPION HCL [Suspect]
     Indication: EX-SMOKER
     Dosage: 150 MG PO BID
     Route: 048

REACTIONS (2)
  - HEADACHE [None]
  - PRURITUS [None]
